FAERS Safety Report 9129633 (Version 2)
Quarter: 2013Q1

REPORT INFORMATION
  Report Type: Spontaneous
  Country: JP (occurrence: JP)
  Receive Date: 20130228
  Receipt Date: 20130307
  Transmission Date: 20140127
  Serious: No
  Sender: FDA-Public Use
  Company Number: JP-ELI_LILLY_AND_COMPANY-JP201301004418

PATIENT
  Age: 30 None
  Sex: Female

DRUGS (3)
  1. CYMBALTA [Suspect]
     Indication: DEPRESSION
     Dosage: 40 MG, QD
     Route: 048
     Dates: start: 20120830
  2. CYMBALTA [Suspect]
     Dosage: 60 MG, QD
     Route: 048
  3. DOMPERIDONE [Concomitant]
     Indication: PROPHYLAXIS
     Dosage: 10 MG, BID
     Route: 048
     Dates: start: 20120830

REACTIONS (3)
  - Delirium [Recovered/Resolved]
  - Hyperphagia [Recovered/Resolved]
  - Insomnia [Recovered/Resolved]
